FAERS Safety Report 20492552 (Version 2)
Quarter: 2022Q1

REPORT INFORMATION
  Report Type: Spontaneous
  Country: GB (occurrence: GB)
  Receive Date: 20220219
  Receipt Date: 20220325
  Transmission Date: 20220423
  Serious: Yes (Life-Threatening, Congenital Anomaly, Other)
  Sender: FDA-Public Use
  Company Number: GB-CELLTRION INC.-2022GB001984

PATIENT

DRUGS (4)
  1. INFLECTRA [Suspect]
     Active Substance: INFLIXIMAB-DYYB
     Indication: Ankylosing spondylitis
     Dosage: 5 MG/KG, EVERY 8 WEEKS
     Route: 064
     Dates: start: 20191022
  2. DULOXETINE [Concomitant]
     Active Substance: DULOXETINE
     Indication: Fibromyalgia
     Dosage: 90 MG, 1X/DAY
     Route: 064
  3. OMEPRAZOLE [Concomitant]
     Active Substance: OMEPRAZOLE
     Indication: Surgery
     Route: 064
  4. VITAMIN D NOS [Concomitant]
     Active Substance: VITAMIN D NOS
     Indication: Vitamin D deficiency
     Route: 064

REACTIONS (4)
  - Maternal exposure during pregnancy [Unknown]
  - Hydrops foetalis [Unknown]
  - Cystic lymphangioma [Unknown]
  - Trisomy 18 [Unknown]
